FAERS Safety Report 26057581 (Version 1)
Quarter: 2025Q4

REPORT INFORMATION
  Report Type: Spontaneous
  Country: US (occurrence: None)
  Receive Date: 20251118
  Receipt Date: 20251118
  Transmission Date: 20260118
  Serious: No
  Sender: UCB
  Company Number: US-UCBSA-2025038049

PATIENT
  Age: 3 Year
  Weight: 13.7 kg

DRUGS (15)
  1. LEVETIRACETAM [Suspect]
     Active Substance: LEVETIRACETAM
     Indication: Status epilepticus
     Dosage: UNK
  2. LEVETIRACETAM [Suspect]
     Active Substance: LEVETIRACETAM
     Indication: Off label use
  3. LACOSAMIDE [Suspect]
     Active Substance: LACOSAMIDE
     Indication: Status epilepticus
     Dosage: UNK
  4. LACOSAMIDE [Suspect]
     Active Substance: LACOSAMIDE
     Indication: Off label use
  5. CLOBAZAM [Concomitant]
     Active Substance: CLOBAZAM
     Indication: Status epilepticus
     Dosage: UNK
  6. CLOBAZAM [Concomitant]
     Active Substance: CLOBAZAM
     Dosage: DOSE INCREASED
  7. VALPROIC ACID [Concomitant]
     Active Substance: VALPROIC ACID
     Indication: Status epilepticus
     Dosage: UNK
  8. LORAZEPAM [Concomitant]
     Active Substance: LORAZEPAM
     Indication: Status epilepticus
     Dosage: UNK
  9. LORAZEPAM [Concomitant]
     Active Substance: LORAZEPAM
     Dosage: UNK
  10. FOSPHENYTOIN [Concomitant]
     Active Substance: FOSPHENYTOIN
     Indication: Status epilepticus
     Dosage: UNK
  11. MIDAZOLAM [Concomitant]
     Active Substance: MIDAZOLAM
     Indication: Status epilepticus
     Dosage: UNK
  12. PERAMPANEL [Concomitant]
     Active Substance: PERAMPANEL
     Indication: Status epilepticus
     Dosage: LOADING DOSE OF 12 MG (0.9 MG/KG) FOLLOWED BY A MAINTENANCE DOSE OF 4 MG (0.3 MG/KG) ONCE DAILY
  13. PERAMPANEL [Concomitant]
     Active Substance: PERAMPANEL
     Dosage: 6 MG (0.4 MG/KG) ONCE DAILY
  14. RUFINAMIDE [Concomitant]
     Active Substance: RUFINAMIDE
     Indication: Status epilepticus
     Dosage: UNK
  15. LACOSAMIDE [Concomitant]
     Active Substance: LACOSAMIDE
     Indication: Seizure

REACTIONS (4)
  - Agitation [Unknown]
  - Behaviour disorder [Unknown]
  - Drug ineffective for unapproved indication [Unknown]
  - Off label use [Unknown]
